FAERS Safety Report 15081286 (Version 1)
Quarter: 2018Q2

REPORT INFORMATION
  Report Type: Spontaneous
  Country: FR (occurrence: FR)
  Receive Date: 20180628
  Receipt Date: 20180628
  Transmission Date: 20180711
  Serious: Yes (Hospitalization)
  Sender: FDA-Public Use
  Company Number: FR-ACCORD-068859

PATIENT
  Age: 74 Year
  Sex: Male

DRUGS (2)
  1. TOMUDEX [Suspect]
     Active Substance: RALTITREXED
     Indication: ADENOCARCINOMA OF COLON
     Route: 041
     Dates: start: 20170707, end: 20170728
  2. OXALIPLATIN. [Suspect]
     Active Substance: OXALIPLATIN
     Indication: ADENOCARCINOMA OF COLON
     Route: 041
     Dates: start: 20170707, end: 20170728

REACTIONS (2)
  - Oesophagitis [Unknown]
  - Duodenitis [Unknown]

NARRATIVE: CASE EVENT DATE: 20170801
